FAERS Safety Report 11575614 (Version 1)
Quarter: 2015Q3

REPORT INFORMATION
  Report Type: Spontaneous
  Country: US (occurrence: None)
  Receive Date: 20150929
  Receipt Date: 20150929
  Transmission Date: 20151125
  Serious: Yes (Other)
  Sender: FDA-Public Use
  Company Number: None

PATIENT
  Age: 54 Year
  Sex: Female
  Weight: 72.58 kg

DRUGS (2)
  1. PRAVASTATIN SODIUM 20 MG [Suspect]
     Active Substance: PRAVASTATIN SODIUM
     Indication: CARDIAC DISORDER
     Route: 048
     Dates: start: 20150815, end: 20150928
  2. LEVOXYTHYROID [Concomitant]

REACTIONS (1)
  - Drug dispensing error [None]

NARRATIVE: CASE EVENT DATE: 20150928
